FAERS Safety Report 8548079-X (Version None)
Quarter: 2012Q3

REPORT INFORMATION
  Report Type: 
  Country: None (occurrence: None)
  Receive Date: 20120730
  Receipt Date: 20120719
  Transmission Date: 20120928
  Serious: Yes (Hospitalization, Other)
  Sender: FDA-Public Use
  Company Number: US-ASTRAZENECA-2011SE41412

PATIENT
  Age: 54 Year
  Sex: Female
  Weight: 67.1 kg

DRUGS (23)
  1. EVISTA [Concomitant]
     Dosage: 60 MG EVERY DAY BEFORE NOON
  2. NEXIUM [Suspect]
     Route: 048
     Dates: start: 20090716
  3. ZOLPIDEM [Concomitant]
     Indication: SLEEP DISORDER
  4. QUESTRAN [Concomitant]
  5. CALCIUM CARBONATE [Concomitant]
  6. NEXIUM [Suspect]
     Route: 048
     Dates: start: 20031202
  7. WELCHOL [Concomitant]
     Indication: IRRITABLE BOWEL SYNDROME
  8. LIBRAX [Concomitant]
     Dates: start: 20090716
  9. VALTREX [Concomitant]
     Indication: HERPES VIRUS INFECTION
  10. ZANTAC [Concomitant]
  11. PEPCID [Concomitant]
  12. BONIVA [Concomitant]
     Dosage: 150 MG ONE TABLET MONTHLY
  13. ANTIVERT [Concomitant]
  14. PATANASE [Concomitant]
     Dosage: SPRAY 2 TIMES BY NASAL ROUT 2 TIMES EVERY DAY
     Route: 045
     Dates: start: 20110325
  15. NEXIUM [Suspect]
     Route: 048
     Dates: start: 20110325
  16. IMODIUM [Concomitant]
  17. VIOXX [Concomitant]
  18. ACETAZOLAMIDE [Concomitant]
     Dates: start: 20110325
  19. LIBRAX [Concomitant]
     Indication: IRRITABLE BOWEL SYNDROME
     Dates: start: 20110325
  20. DEXILANT [Concomitant]
     Indication: GASTROOESOPHAGEAL REFLUX DISEASE
  21. NEXIUM [Suspect]
     Indication: GASTROOESOPHAGEAL REFLUX DISEASE
     Route: 048
     Dates: start: 20010101, end: 20100101
  22. ACETAZOLAMIDE [Concomitant]
     Indication: MENIERE'S DISEASE
     Dates: start: 20090716
  23. QUESTRAN [Concomitant]
     Dates: start: 20090716

REACTIONS (12)
  - EMOTIONAL DISTRESS [None]
  - BASAL CELL CARCINOMA [None]
  - PAIN IN EXTREMITY [None]
  - OSTEOPOROSIS [None]
  - CALCIUM DEFICIENCY [None]
  - DEPRESSION [None]
  - PAIN [None]
  - SKIN CANCER [None]
  - VITAMIN D DEFICIENCY [None]
  - ARTHRALGIA [None]
  - GALLBLADDER DISORDER [None]
  - OSTEOPENIA [None]
